FAERS Safety Report 5041480-0 (Version None)
Quarter: 2006Q2

REPORT INFORMATION
  Report Type: 
  Country: None (occurrence: None)
  Receive Date: 20060627
  Receipt Date: 20060612
  Transmission Date: 20061013
  Serious: Yes (Other)
  Sender: FDA-Public Use
  Company Number: US-2006-015199

PATIENT
  Age: 56 Year
  Sex: Female

DRUGS (4)
  1. BETASERON [Suspect]
     Indication: MULTIPLE SCLEROSIS
     Dosage: SEE IMAGE
     Route: 058
     Dates: end: 20060601
  2. BETASERON [Suspect]
     Indication: MULTIPLE SCLEROSIS
     Dosage: SEE IMAGE
     Route: 058
     Dates: start: 20060610, end: 20060610
  3. VITAMIN D [Suspect]
  4. MULTIVITAMINS (FOLIC ACID, RIBOFLAVIN, THIAMINE HYDROCHLORIDE, ASCORBI [Suspect]

REACTIONS (4)
  - NIGHTMARE [None]
  - PAIN IN EXTREMITY [None]
  - STRESS [None]
  - SYSTEMIC LUPUS ERYTHEMATOSUS [None]
